FAERS Safety Report 6567796-4 (Version None)
Quarter: 2010Q1

REPORT INFORMATION
  Report Type: 
  Country: None (occurrence: None)
  Receive Date: 20100203
  Receipt Date: 20100125
  Transmission Date: 20100710
  Serious: Yes (Hospitalization)
  Sender: FDA-Public Use
  Company Number: CH-ASTRAZENECA-2010SE03897

PATIENT
  Age: 78 Year
  Sex: Male

DRUGS (6)
  1. SEROQUEL [Suspect]
     Route: 048
     Dates: start: 20090512, end: 20090615
  2. SEROQUEL [Suspect]
     Route: 048
     Dates: start: 20090616, end: 20090618
  3. SEROQUEL [Suspect]
     Route: 048
     Dates: start: 20090619
  4. REMERON [Suspect]
     Route: 048
     Dates: start: 20090520, end: 20090525
  5. SERALIN MEPHA [Concomitant]
     Route: 048
     Dates: start: 20090514, end: 20090713
  6. ZOLPIDEM [Concomitant]
     Route: 048
     Dates: start: 20090512

REACTIONS (1)
  - NEUTROPENIA [None]
